FAERS Safety Report 9098497 (Version 2)
Quarter: 2013Q3

REPORT INFORMATION
  Report Type: Spontaneous
  Country: US (occurrence: US)
  Receive Date: 20130213
  Receipt Date: 20130916
  Transmission Date: 20140515
  Serious: Yes (Hospitalization, Other)
  Sender: FDA-Public Use
  Company Number: US-PFIZER INC-2013056966

PATIENT
  Age: 74 Year
  Sex: Male
  Weight: 71.2 kg

DRUGS (5)
  1. LYRICA [Suspect]
     Indication: FIBROMYALGIA
     Dosage: 50 MG, 3X/DAY
     Route: 048
  2. LYRICA [Suspect]
     Dosage: 100 MG, 3X/DAY
     Route: 048
     Dates: start: 20130722
  3. COUMADIN [Suspect]
     Dosage: UNK
  4. ARICEPT [Concomitant]
     Dosage: UNK
  5. NAMENDA [Concomitant]
     Indication: DEMENTIA
     Dosage: 10 MG, 2X/DAY

REACTIONS (6)
  - Lung neoplasm malignant [Recovered/Resolved]
  - Local swelling [Unknown]
  - Haemoglobin decreased [Unknown]
  - Thrombosis [Unknown]
  - Sedation [Unknown]
  - Lethargy [Unknown]
